FAERS Safety Report 4288135-8 (Version None)
Quarter: 2004Q1

REPORT INFORMATION
  Report Type: 
  Country: None (occurrence: None)
  Receive Date: 20040202
  Receipt Date: 20030403
  Transmission Date: 20041129
  Serious: Yes (Hospitalization)
  Sender: FDA-Public Use
  Company Number: 136593USA

PATIENT
  Age: 56 Year
  Sex: Female
  Weight: 54.4316 kg

DRUGS (11)
  1. COPAXONE [Suspect]
     Indication: MULTIPLE SCLEROSIS
     Dosage: 20 MILLIGRAM QD SUBCUTANEOUS
     Route: 058
     Dates: start: 20000209
  2. IBUPROFEN [Suspect]
     Dosage: 400 MILLIGRAM QID ORAL
     Route: 048
  3. LASIX [Concomitant]
  4. ALTACE [Concomitant]
  5. ZAROXOLYN [Concomitant]
  6. MOTRIN [Concomitant]
  7. FENTANYL [Concomitant]
  8. HERBAL SUPPLEMENTS [Concomitant]
  9. DITROPAN XL [Concomitant]
  10. MIDRIN [Concomitant]
  11. MULTI-VITAMINS [Concomitant]

REACTIONS (2)
  - GLOMERULONEPHRITIS FOCAL [None]
  - NEPHROTIC SYNDROME [None]
